FAERS Safety Report 7585631-2 (Version None)
Quarter: 2011Q3

REPORT INFORMATION
  Report Type: 
  Country: None (occurrence: None)
  Receive Date: 20110701
  Receipt Date: 20110628
  Transmission Date: 20111222
  Serious: Yes (Death, Hospitalization, Other)
  Sender: FDA-Public Use
  Company Number: US-AMGEN-USASP2010004781

PATIENT
  Age: 68 Year
  Sex: Male
  Weight: 102.49 kg

DRUGS (26)
  1. LEUKERAN [Concomitant]
  2. LEVAQUIN [Concomitant]
  3. NPLATE [Suspect]
     Indication: IDIOPATHIC THROMBOCYTOPENIC PURPURA
     Dosage: 2 A?G, QWK
     Route: 058
     Dates: start: 20100803, end: 20101014
  4. VICODIN [Concomitant]
  5. AMOXICILLIN [Concomitant]
  6. FLUNISOLIDE [Concomitant]
  7. FOLIC ACID [Concomitant]
  8. KEFLEX [Concomitant]
  9. VITAMIN C                          /00008001/ [Concomitant]
  10. VALTREX [Concomitant]
  11. NEUPOGEN [Suspect]
     Indication: CHEMOTHERAPY
     Dosage: UNK
     Dates: start: 20090101
  12. PROMETHAZINE [Concomitant]
     Dosage: 25 MG, UNK
  13. PREVACID [Concomitant]
  14. PREDNISONE [Concomitant]
  15. NEULASTA [Suspect]
     Indication: CHEMOTHERAPY
     Dosage: UNK
     Dates: start: 20100101
  16. CORTICOSTEROIDS [Concomitant]
     Indication: IDIOPATHIC THROMBOCYTOPENIC PURPURA
  17. PROCRIT [Suspect]
     Indication: ANAEMIA
     Dosage: UNK
     Dates: start: 20101115
  18. CELECOXIB [Concomitant]
     Dosage: 200 MG, UNK
  19. PRILOSEC [Concomitant]
  20. ALFUZOSIN HCL [Concomitant]
     Dosage: 10 MG, UNK
  21. MONTELUKAST SODIUM [Concomitant]
  22. VALACYCLOVIR [Concomitant]
  23. ALLOPURINOL [Concomitant]
     Dosage: 300 MG, UNK
     Dates: start: 20101008
  24. CETIRIZINE HCL [Concomitant]
  25. FLUCONAZOLE [Concomitant]
  26. HYDROCODONE [Concomitant]

REACTIONS (21)
  - LEUKAEMIA [None]
  - B-CELL LYMPHOMA [None]
  - ENTEROCOLITIS INFECTIOUS [None]
  - DEVICE RELATED SEPSIS [None]
  - PSEUDOHYPERKALAEMIA [None]
  - VOLVULUS [None]
  - BENIGN PROSTATIC HYPERPLASIA [None]
  - ASTHENIA [None]
  - NEOPLASM MALIGNANT [None]
  - URINARY HESITATION [None]
  - INFLUENZA LIKE ILLNESS [None]
  - LEUKOCYTOSIS [None]
  - PETECHIAE [None]
  - SEPTIC SHOCK [None]
  - BONE MARROW FAILURE [None]
  - HYPOKALAEMIA [None]
  - PURPURA [None]
  - FATIGUE [None]
  - ANAEMIA [None]
  - URINARY TRACT OBSTRUCTION [None]
  - THROMBOCYTOPENIA [None]
